FAERS Safety Report 9116587 (Version 1)
Quarter: 2013Q1

REPORT INFORMATION
  Report Type: Spontaneous
  Country: US (occurrence: US)
  Receive Date: 20130225
  Receipt Date: 20130225
  Transmission Date: 20140127
  Serious: Yes (Hospitalization)
  Sender: FDA-Public Use
  Company Number: PHHY2013US002006

PATIENT
  Sex: Female
  Weight: 76.37 kg

DRUGS (22)
  1. JAKAFI [Suspect]
     Indication: MYELOPROLIFERATIVE DISORDER
     Dosage: 20 MG, QD
     Route: 048
     Dates: start: 20120222, end: 2012
  2. JAKAFI [Suspect]
     Dosage: 20 MG, BID
     Route: 048
     Dates: start: 2012
  3. METHADONE HYDROCHLORIDE [Suspect]
     Dosage: 10 MG, BID
     Dates: end: 20121214
  4. METHADONE HYDROCHLORIDE [Suspect]
     Dosage: 10 MG, QAM + 5 MG, QHS (FOR A WEEK)
     Dates: start: 20121215, end: 20121215
  5. VICODIN [Concomitant]
     Indication: PAIN
     Dosage: 2 DF, EVERY 6 HOURS
  6. TRAZODONE [Concomitant]
     Dosage: UNK UKN, UNK
  7. XANAX [Concomitant]
     Dosage: UNK UKN, UNK
  8. DOXEPIN [Concomitant]
     Dosage: UNK UKN, UNK
  9. CARBIDOPA/LEVODOPA [Concomitant]
     Dosage: UNK UKN, UNK
  10. BELLADONNA EXTRACT [Concomitant]
     Dosage: UNK UKN, UNK
  11. PHENOBARBITAL [Concomitant]
     Dosage: UNK UKN, UNK
  12. PAXIL [Concomitant]
     Dosage: UNK UKN, UNK
  13. HYDROCHLOROTHIAZIDE [Concomitant]
     Dosage: UNK UKN, UNK
  14. LASIX [Concomitant]
     Dosage: UNK UKN, UNK
  15. METOPROLOL [Concomitant]
     Dosage: UNK UKN, UNK
  16. CARVEDILOL [Concomitant]
     Dosage: UNK UKN, UNK
  17. LIPITOR [Concomitant]
     Dosage: UNK UKN, UNK
  18. PRILOSEC [Concomitant]
     Dosage: UNK UKN, UNK
  19. ASPIRIN [Concomitant]
     Dosage: UNK UKN, UNK
  20. QUINAPRIL [Concomitant]
     Dosage: UNK UKN, UNK
  21. TRAMADOL [Concomitant]
     Dosage: UNK UKN, UNK
  22. ROCEPHIN [Concomitant]
     Dosage: UNK UKN, UNK

REACTIONS (7)
  - Acute myocardial infarction [Unknown]
  - Somnolence [Unknown]
  - Fatigue [Unknown]
  - Hypoxia [Unknown]
  - Fall [Unknown]
  - Dizziness [Unknown]
  - Arthralgia [Unknown]
